FAERS Safety Report 23222468 (Version 2)
Quarter: 2023Q4

REPORT INFORMATION
  Report Type: Spontaneous
  Country: US (occurrence: US)
  Receive Date: 20231123
  Receipt Date: 20231222
  Transmission Date: 20240109
  Serious: No
  Sender: FDA-Public Use
  Company Number: US-GSK-US2023AMR157210

PATIENT
  Sex: Female

DRUGS (1)
  1. ALBUTEROL SULFATE [Suspect]
     Active Substance: ALBUTEROL SULFATE
     Indication: Pneumonia
     Dosage: UNK,90 MCG, 18G/200 METERED
     Dates: start: 20231108

REACTIONS (3)
  - Wrong technique in device usage process [Unknown]
  - Product prescribing issue [Unknown]
  - Product complaint [Unknown]
